FAERS Safety Report 15638202 (Version 1)
Quarter: 2018Q4

REPORT INFORMATION
  Report Type: Spontaneous
  Country: US (occurrence: US)
  Receive Date: 20181120
  Receipt Date: 20181120
  Transmission Date: 20190205
  Serious: No
  Sender: FDA-Public Use
  Company Number: US-JNJFOC-20180800408

PATIENT
  Age: 66 Year
  Sex: Female

DRUGS (8)
  1. ACYCLOVIR. [Concomitant]
     Active Substance: ACYCLOVIR
  2. IRON [Concomitant]
     Active Substance: IRON
  3. IMBRUVICA [Suspect]
     Active Substance: IBRUTINIB
     Indication: LYMPHOMA
     Route: 065
     Dates: start: 20180503
  4. CALCIUM [Concomitant]
     Active Substance: CALCIUM
  5. IMBRUVICA [Suspect]
     Active Substance: IBRUTINIB
     Indication: LYMPHOMA
     Route: 065
     Dates: start: 20180604
  6. ALLOPURINOL. [Concomitant]
     Active Substance: ALLOPURINOL
  7. VITAMIN D [Concomitant]
     Active Substance: CHOLECALCIFEROL
  8. MULTIVITAMINS [Concomitant]
     Active Substance: VITAMINS

REACTIONS (4)
  - Sinus disorder [Unknown]
  - Product use in unapproved indication [Unknown]
  - Off label use [Unknown]
  - Secretion discharge [Unknown]

NARRATIVE: CASE EVENT DATE: 20180503
